FAERS Safety Report 9788773 (Version 2)
Quarter: 2013Q4

REPORT INFORMATION
  Report Type: Report from Study
  Country: BE (occurrence: BE)
  Receive Date: 20131230
  Receipt Date: 20131230
  Transmission Date: 20140711
  Serious: Yes (Hospitalization)
  Sender: FDA-Public Use
  Company Number: BE-VERTEX PHARMACEUTICALS INC-2013-011540

PATIENT
  Age: 67 Year
  Sex: Male

DRUGS (5)
  1. TELAPREVIR [Suspect]
     Indication: HEPATITIS C
     Dosage: 2250 MG, QD
  2. PEGASYS [Suspect]
     Indication: HEPATITIS C
     Dosage: 0.5 UNK, QW
  3. COPEGUS [Suspect]
     Indication: HEPATITIS C
     Dosage: 1000 MG, QD
     Route: 065
  4. CAMPRAL [Concomitant]
     Route: 065
  5. BEFACT [Concomitant]
     Dosage: UNK, QD
     Route: 065

REACTIONS (4)
  - Depression [Not Recovered/Not Resolved]
  - Fatigue [Recovered/Resolved]
  - Anaemia [Recovered/Resolved]
  - Gastrointestinal pain [Not Recovered/Not Resolved]
